FAERS Safety Report 23542488 (Version 2)
Quarter: 2024Q1

REPORT INFORMATION
  Report Type: Report from Study
  Country: EU (occurrence: EU)
  Receive Date: 20240220
  Receipt Date: 20240311
  Transmission Date: 20240409
  Serious: Yes (Death, Other)
  Sender: FDA-Public Use
  Company Number: EU-OCTA-GAM03324

PATIENT
  Age: 51 Year
  Sex: Female
  Weight: 112 kg

DRUGS (1)
  1. OCTAGAM IMMUNE GLOBULIN (HUMAN) [Suspect]
     Active Substance: HUMAN IMMUNOGLOBULIN G
     Indication: Immune thrombocytopenia
     Dosage: MASKED
     Route: 042
     Dates: start: 20221221, end: 20221223

REACTIONS (6)
  - Cerebral haemorrhage [Fatal]
  - Cerebral mass effect [Unknown]
  - Brain herniation [Unknown]
  - Thrombocytopenia [Unknown]
  - Aspiration [Fatal]
  - Seizure [Fatal]

NARRATIVE: CASE EVENT DATE: 20221224
